FAERS Safety Report 6389415-2 (Version None)
Quarter: 2009Q4

REPORT INFORMATION
  Report Type: 
  Country: None (occurrence: None)
  Receive Date: 20091006
  Receipt Date: 20090928
  Transmission Date: 20100525
  Serious: Yes (Hospitalization, Other)
  Sender: FDA-Public Use
  Company Number: US-JNJFOC-20090908566

PATIENT
  Sex: Male
  Weight: 92.99 kg

DRUGS (9)
  1. FENTANYL TRANSDERMAL SYSTEM [Suspect]
     Route: 062
     Dates: start: 20050101, end: 20090901
  2. FENTANYL TRANSDERMAL SYSTEM [Suspect]
     Route: 062
     Dates: start: 20050101, end: 20090901
  3. FENTANYL TRANSDERMAL SYSTEM [Suspect]
     Indication: BACK PAIN
     Route: 062
     Dates: start: 20050101, end: 20090901
  4. FENTANYL [Suspect]
     Indication: BACK PAIN
     Route: 062
  5. DURAGESIC-100 [Suspect]
     Indication: BACK PAIN
     Route: 062
  6. TRILIPIX [Concomitant]
     Indication: BLOOD CHOLESTEROL INCREASED
     Route: 048
  7. KLONOPIN [Concomitant]
     Indication: PANIC DISORDER
     Route: 048
  8. DALMANE [Concomitant]
     Indication: INSOMNIA
     Dosage: AT BED TIME
     Route: 048
  9. LYRICA [Concomitant]
     Indication: INSOMNIA
     Dosage: AT BED TIME
     Route: 048

REACTIONS (7)
  - ANGINA PECTORIS [None]
  - INTENTIONAL DRUG MISUSE [None]
  - MYOCARDIAL INFARCTION [None]
  - PAIN IN EXTREMITY [None]
  - THYROID FUNCTION TEST ABNORMAL [None]
  - WEIGHT DECREASED [None]
  - WITHDRAWAL SYNDROME [None]
